FAERS Safety Report 9260677 (Version 1)
Quarter: 2013Q2

REPORT INFORMATION
  Report Type: Other
  Country: GB (occurrence: GB)
  Receive Date: 20130429
  Receipt Date: 20130429
  Transmission Date: 20140414
  Serious: Yes (Life-Threatening)
  Sender: FDA-Public Use
  Company Number: GB-TARO PHARMACEUTICALS U.S.A., INC-2013SUN00510

PATIENT
  Age: 69 Year
  Sex: Female
  Weight: 74 kg

DRUGS (7)
  1. WARFARIN [Suspect]
     Indication: PULMONARY EMBOLISM
     Dosage: 10 MG, UNK
     Route: 048
     Dates: start: 20130402, end: 20130403
  2. ATENOLOL [Concomitant]
     Indication: HYPERTENSION
     Dosage: 50 MG, UNK
     Route: 048
  3. DOXYCYCLINE [Concomitant]
     Indication: UPPER RESPIRATORY TRACT INFECTION
     Dosage: 100 MG, OD
     Route: 048
     Dates: start: 20130312, end: 20130319
  4. HUMIRA [Concomitant]
     Dosage: 40 MG, ONE PER TWO WEEKS
     Route: 058
  5. PARACETAMOL [Concomitant]
     Indication: RHEUMATOID ARTHRITIS
     Dosage: 1 G, FOUR PER ONE DAY
     Route: 048
  6. RAMIPRIL [Concomitant]
     Indication: HYPERTENSION
     Dosage: 5 MG, UNK
     Route: 048
  7. SALAZOPYRIN [Concomitant]
     Dosage: 1.5 G, TWO PER ONE DAY

REACTIONS (1)
  - Swollen tongue [Recovered/Resolved]
